FAERS Safety Report 5945470-2 (Version None)
Quarter: 2008Q4

REPORT INFORMATION
  Report Type: 
  Country: None (occurrence: None)
  Receive Date: 20081107
  Receipt Date: 20081027
  Transmission Date: 20090506
  Serious: Yes (Other)
  Sender: FDA-Public Use
  Company Number: SA-PFIZER INC-2008086279

PATIENT
  Sex: Male

DRUGS (2)
  1. LYRICA [Suspect]
     Indication: DIABETIC NEUROPATHY
     Route: 048
     Dates: start: 20081004, end: 20081011
  2. LYRICA [Suspect]
     Route: 048

REACTIONS (2)
  - ABDOMINAL RIGIDITY [None]
  - DIARRHOEA [None]
